FAERS Safety Report 13241245 (Version 3)
Quarter: 2017Q2

REPORT INFORMATION
  Report Type: Spontaneous
  Country: US (occurrence: US)
  Receive Date: 20170216
  Receipt Date: 20170407
  Transmission Date: 20170830
  Serious: Yes (Other)
  Sender: FDA-Public Use
  Company Number: US-SAOL THERAPEUTICS-2017SAO00312

PATIENT
  Age: 59 Year
  Sex: Male

DRUGS (23)
  1. BACLOFEN. [Suspect]
     Active Substance: BACLOFEN
     Dosage: 216 ?G, \DAY
     Route: 037
     Dates: start: 20161103
  2. BACLOFEN. [Suspect]
     Active Substance: BACLOFEN
     Dosage: 120 ?G, \DAY
     Route: 037
     Dates: start: 20170301, end: 20170307
  3. BACLOFEN. [Suspect]
     Active Substance: BACLOFEN
     Dosage: 216 ?G, \DAY
     Route: 037
     Dates: start: 20170213, end: 20170216
  4. BACLOFEN. [Suspect]
     Active Substance: BACLOFEN
     Dosage: 126 ?G, \DAY
     Route: 037
     Dates: start: 20170223, end: 20170227
  5. BACLOFEN. [Concomitant]
     Active Substance: BACLOFEN
     Dosage: 5 MG, 1X/DAY
     Route: 048
  6. BACLOFEN. [Suspect]
     Active Substance: BACLOFEN
     Dosage: 76 ?G, \DAY
     Route: 037
     Dates: start: 20170313, end: 20170327
  7. BACLOFEN. [Suspect]
     Active Substance: BACLOFEN
     Indication: MUSCLE SPASTICITY
     Dosage: 258 ?G, \DAY
     Route: 037
     Dates: start: 201701
  8. BACLOFEN. [Suspect]
     Active Substance: BACLOFEN
     Dosage: 300 ?G, \DAY
     Route: 037
     Dates: start: 20160201
  9. BACLOFEN. [Suspect]
     Active Substance: BACLOFEN
     Dosage: 96.1 ?G, \DAY
     Route: 037
     Dates: start: 20170307, end: 20170313
  10. BACLOFEN. [Suspect]
     Active Substance: BACLOFEN
     Dosage: 195 ?G, \DAY
     Route: 037
     Dates: start: 20170216, end: 20170220
  11. BACLOFEN. [Suspect]
     Active Substance: BACLOFEN
     Dosage: 157 ?G, \DAY
     Route: 037
     Dates: start: 20170220, end: 20170223
  12. BACLOFEN. [Suspect]
     Active Substance: BACLOFEN
     Indication: CEREBROVASCULAR ACCIDENT
     Dosage: 264 ?G, \DAY
     Route: 037
     Dates: start: 20151015
  13. BACLOFEN. [Suspect]
     Active Substance: BACLOFEN
     Dosage: 253 ?G, \DAY
     Route: 037
     Dates: start: 20170111, end: 20170130
  14. BACLOFEN. [Suspect]
     Active Substance: BACLOFEN
     Dosage: 313 ?G, \DAY
     Route: 037
     Dates: start: 20151130
  15. BACLOFEN. [Suspect]
     Active Substance: BACLOFEN
     Dosage: 210 ?G, \DAY
     Route: 037
     Dates: start: 20160701
  16. BACLOFEN. [Suspect]
     Active Substance: BACLOFEN
     Dosage: 240 ?G, \DAY
     Route: 037
     Dates: start: 20170130, end: 20170213
  17. BACLOFEN. [Suspect]
     Active Substance: BACLOFEN
     Dosage: 287 ?G, \DAY
     Route: 037
     Dates: start: 20151102
  18. BACLOFEN. [Suspect]
     Active Substance: BACLOFEN
     Dosage: 234 ?G, \DAY
     Route: 037
     Dates: start: 20161128
  19. BACLOFEN. [Suspect]
     Active Substance: BACLOFEN
     Dosage: 225 ?G, \DAY
     Route: 037
     Dates: start: 20161121
  20. BACLOFEN. [Suspect]
     Active Substance: BACLOFEN
     Dosage: 244 ?G, \DAY
     Route: 037
     Dates: start: 20161206
  21. BACLOFEN. [Suspect]
     Active Substance: BACLOFEN
     Dosage: 113 ?G, \DAY
     Route: 037
     Dates: start: 20170227, end: 20170301
  22. TIZANIDINE. [Concomitant]
     Active Substance: TIZANIDINE
     Dosage: 2 MG, UNK
  23. BACLOFEN. [Suspect]
     Active Substance: BACLOFEN
     Dosage: 55 ?G, \DAY
     Route: 037
     Dates: start: 20170327

REACTIONS (26)
  - Medical device discomfort [Unknown]
  - Pain [Unknown]
  - Hyperreflexia [Unknown]
  - Anxiety [Unknown]
  - Complication associated with device [Unknown]
  - Hypotonia [Not Recovered/Not Resolved]
  - Muscular weakness [Unknown]
  - Nausea [Unknown]
  - Hypersensitivity [Unknown]
  - Musculoskeletal stiffness [Unknown]
  - Device kink [Unknown]
  - Back pain [Unknown]
  - Mass [Unknown]
  - Device leakage [Unknown]
  - Urinary tract infection [Recovered/Resolved]
  - Sciatica [Unknown]
  - Poor quality sleep [Not Recovered/Not Resolved]
  - Muscle spasms [Unknown]
  - Muscle spasticity [Unknown]
  - Gait disturbance [Unknown]
  - Dizziness [Unknown]
  - Back injury [Unknown]
  - Tremor [Unknown]
  - Hypertonia [Unknown]
  - Headache [Unknown]
  - Device dislocation [Unknown]

NARRATIVE: CASE EVENT DATE: 20160701
